FAERS Safety Report 24454153 (Version 2)
Quarter: 2024Q4

REPORT INFORMATION
  Report Type: Spontaneous
  Country: HR (occurrence: HR)
  Receive Date: 20241017
  Receipt Date: 20241018
  Transmission Date: 20250115
  Serious: No
  Sender: ROCHE
  Company Number: HR-ROCHE-3454442

PATIENT
  Age: 85 Year
  Sex: Female

DRUGS (6)
  1. RITUXIMAB [Suspect]
     Active Substance: RITUXIMAB
     Indication: Guillain-Barre syndrome
     Dosage: IN FOUR DOSES
     Route: 042
  2. BORTEZOMIB [Concomitant]
     Active Substance: BORTEZOMIB
  3. MELPHALAN [Concomitant]
     Active Substance: MELPHALAN
  4. PREDNISONE [Concomitant]
     Active Substance: PREDNISONE
  5. CEFTRIAXONE [Concomitant]
     Active Substance: CEFTRIAXONE
  6. RIVAROXABAN [Concomitant]
     Active Substance: RIVAROXABAN

REACTIONS (2)
  - Off label use [Unknown]
  - No adverse event [Unknown]
